FAERS Safety Report 4313828-3 (Version None)
Quarter: 2004Q1

REPORT INFORMATION
  Report Type: 
  Country: None (occurrence: None)
  Receive Date: 20040304
  Receipt Date: 20040202
  Transmission Date: 20041129
  Serious: Yes (Other)
  Sender: FDA-Public Use
  Company Number: 2004006844

PATIENT
  Sex: 0

DRUGS (1)
  1. GEODON [Suspect]
     Indication: ILL-DEFINED DISORDER
     Dosage: 160 MG (DAILY)

REACTIONS (1)
  - CONVULSION [None]
